APPROVED DRUG PRODUCT: TERBINAFINE HYDROCHLORIDE
Active Ingredient: TERBINAFINE HYDROCHLORIDE
Strength: EQ 250MG BASE
Dosage Form/Route: TABLET;ORAL
Application: A077714 | Product #001
Applicant: BRECKENRIDGE PHARMACEUTICAL INC
Approved: Jun 4, 2010 | RLD: No | RS: No | Type: DISCN